FAERS Safety Report 11982355 (Version 3)
Quarter: 2016Q2

REPORT INFORMATION
  Report Type: Report from Study
  Country: IT (occurrence: IT)
  Receive Date: 20160201
  Receipt Date: 20160623
  Transmission Date: 20160815
  Serious: Yes (Life-Threatening, Hospitalization)
  Sender: FDA-Public Use
  Company Number: IT-ACCORD-033604

PATIENT
  Age: 71 Year
  Sex: Male

DRUGS (8)
  1. FLUOROURACIL ACCORD [Suspect]
     Active Substance: FLUOROURACIL
     Indication: ADENOCARCINOMA OF COLON
     Dosage: STRENGTH: 50 MG/ML,??RECEIVED ON 26-OCT-2015, ON 03-JUN-2015 AND ON 10-NOV-2015.
     Route: 041
     Dates: start: 20150603
  2. LANSOX [Concomitant]
     Active Substance: LANSOPRAZOLE
     Dates: start: 20150903
  3. ZALTRAP [Suspect]
     Active Substance: ZIV-AFLIBERCEPT
     Indication: ADENOCARCINOMA OF COLON
     Dosage: SANOFI-AVENTIS GROUPE.?DURATION 174 DAYS.RECEIVED AFLIBERCEPT AT 272 MG ON 03-JUN-2015
     Route: 041
     Dates: start: 20150603
  4. METFORMIN [Concomitant]
     Active Substance: METFORMIN HYDROCHLORIDE
     Dates: start: 20150903
  5. IRINOTECAN HOSPIRA [Suspect]
     Active Substance: IRINOTECAN
     Indication: ADENOCARCINOMA OF COLON
     Dosage: STRENGTH: 20 MG/ML
     Route: 041
     Dates: start: 20150603
  6. IRINOTECAN [Suspect]
     Active Substance: IRINOTECAN
     Indication: ADENOCARCINOMA OF COLON
     Dosage: RECEIVED TILL 26-AUG-2015 AND SUBSEQUENTLY WITHDRAWN AND THAN TILL 26-OCT-2015.
     Route: 041
     Dates: start: 20150603
  7. CALCIUM LEVOFOLINATE TEVA [Concomitant]
     Active Substance: LEVOLEUCOVORIN CALCIUM
     Dosage: STRENGTH: 175 MG, RECEIVED LEUCOVORIN AT 356 MG ON 03-JUN-2015 AND SAME DOSE ON 10-NOV-2015
     Route: 042
     Dates: start: 20150603, end: 20150826
  8. MOVICOL [Concomitant]
     Active Substance: POLYETHYLENE GLYCOL 3350\POTASSIUM CHLORIDE\SODIUM BICARBONATE\SODIUM CHLORIDE
     Dates: start: 20150903

REACTIONS (3)
  - Sepsis [Recovered/Resolved]
  - Asthenia [Unknown]
  - Haemorrhoids [Recovered/Resolved]

NARRATIVE: CASE EVENT DATE: 20150810
